FAERS Safety Report 7474314-5 (Version None)
Quarter: 2011Q2

REPORT INFORMATION
  Report Type: 
  Country: None (occurrence: None)
  Receive Date: 20110511
  Receipt Date: 20110511
  Transmission Date: 20111010
  Serious: Yes (Other)
  Sender: FDA-Public Use
  Company Number: US-AMGEN-USASP2011023058

PATIENT
  Age: 33 Year
  Sex: Female

DRUGS (2)
  1. ENBREL [Suspect]
     Indication: PSORIATIC ARTHROPATHY
  2. ENBREL [Suspect]
     Indication: PUSTULAR PSORIASIS
     Dosage: 25 MG, 4 TIMES/WK
     Route: 058
     Dates: start: 20021129

REACTIONS (2)
  - PUSTULAR PSORIASIS [None]
  - FOETAL HEART RATE ABNORMAL [None]
